FAERS Safety Report 8863052 (Version 1)
Quarter: 2012Q4

REPORT INFORMATION
  Report Type: 
  Country: US (occurrence: US)
  Receive Date: 20121026
  Receipt Date: 20121026
  Transmission Date: 20130627
  Serious: Yes (Other)
  Sender: FDA-Public Use
  Company Number: US-PERRIGO-12US008784

PATIENT
  Age: 31 Year
  Sex: Female
  Weight: 83.9 kg

DRUGS (3)
  1. LEVONORGESTREL [Suspect]
     Indication: CONTRACEPTION
     Dosage: 0.75 mg, single at 1200
     Route: 048
     Dates: start: 20120822, end: 20120822
  2. LEVONORGESTREL [Suspect]
     Dosage: 0.75 mg, single at 0000
     Route: 048
     Dates: start: 20120823, end: 20120823
  3. ACYCLOVIR [Concomitant]
     Indication: HERPES VIRUS INFECTION
     Dosage: UNK, prn
     Route: 048

REACTIONS (4)
  - Ovarian cyst [Unknown]
  - Amenorrhoea [Not Recovered/Not Resolved]
  - Vaginal haemorrhage [Recovered/Resolved]
  - Abdominal pain [Not Recovered/Not Resolved]
